FAERS Safety Report 7148133-3 (Version None)
Quarter: 2010Q4

REPORT INFORMATION
  Report Type: 
  Country: None (occurrence: None)
  Receive Date: 20101209
  Receipt Date: 20101201
  Transmission Date: 20110411
  Serious: Yes (Hospitalization)
  Sender: FDA-Public Use
  Company Number: TW-PFIZER INC-2010144263

PATIENT
  Age: 54 Year
  Sex: Female
  Weight: 56 kg

DRUGS (3)
  1. BLINDED *NO SUBJECT DRUG [Suspect]
     Indication: RENAL CELL CARCINOMA
     Dosage: 50 MG, DAILY, SCHEDULE 4/2
     Route: 048
     Dates: start: 20101022, end: 20101107
  2. PLACEBO [Suspect]
     Indication: RENAL CELL CARCINOMA
     Dosage: 50 MG, DAILY, SCHEDULE 4/2
     Route: 048
     Dates: start: 20101022, end: 20101107
  3. SUNITINIB MALATE [Suspect]
     Indication: RENAL CELL CARCINOMA
     Dosage: 50 MG, DAILY, SCHEDULE 4/2
     Route: 048
     Dates: start: 20101022, end: 20101107

REACTIONS (3)
  - CHOLECYSTITIS ACUTE [None]
  - HEPATITIS ACUTE [None]
  - THROMBOCYTOPENIA [None]
